FAERS Safety Report 4312313-2 (Version None)
Quarter: 2004Q1

REPORT INFORMATION
  Report Type: 
  Country: None (occurrence: None)
  Receive Date: 20040305
  Receipt Date: 20040223
  Transmission Date: 20041129
  Serious: Yes (Hospitalization, Disabling)
  Sender: FDA-Public Use
  Company Number: JP-GLAXOSMITHKLINE-B0324518A

PATIENT
  Age: 71 Year
  Sex: Male

DRUGS (3)
  1. PAXIL [Suspect]
     Indication: DEPRESSION
     Dosage: 10MG PER DAY
     Route: 048
     Dates: start: 20030401, end: 20040220
  2. LULLAN [Suspect]
     Route: 048
     Dates: end: 20040220
  3. CONIEL [Concomitant]
     Route: 048
     Dates: end: 20040220

REACTIONS (1)
  - RHABDOMYOLYSIS [None]
